FAERS Safety Report 9562954 (Version 2)
Quarter: 2013Q4

REPORT INFORMATION
  Report Type: Report from Study
  Country: IT (occurrence: IT)
  Receive Date: 20130927
  Receipt Date: 20131010
  Transmission Date: 20140711
  Serious: Yes (Hospitalization)
  Sender: FDA-Public Use
  Company Number: IT-CELGENEUS-083-21880-13092705

PATIENT
  Age: 64 Year
  Sex: Female
  Weight: 60 kg

DRUGS (15)
  1. REVLIMID [Suspect]
     Indication: PLASMA CELL MYELOMA
     Dosage: 25 MILLIGRAM
     Route: 048
     Dates: start: 20090922, end: 20091013
  2. REVLIMID [Suspect]
     Dosage: 25 MILLIGRAM
     Route: 048
     Dates: start: 20110522, end: 20110611
  3. REVLIMID [Suspect]
     Dosage: 25 MILLIGRAM
     Route: 048
     Dates: end: 20110618
  4. REVLIMID [Suspect]
     Dosage: 25 MILLIGRAM
     Route: 048
     Dates: end: 20110816
  5. DEXAMETHASONE [Suspect]
     Indication: PLASMA CELL MYELOMA
     Route: 065
     Dates: start: 200209, end: 200209
  6. DEXAMETHASONE [Suspect]
     Route: 065
     Dates: start: 200409, end: 200412
  7. DEXAMETHASONE [Suspect]
     Route: 065
     Dates: start: 200503, end: 200510
  8. DEXAMETHASONE [Suspect]
     Route: 065
     Dates: start: 200606, end: 200704
  9. DEXAMETHASONE [Suspect]
     Dosage: 160 MG MONTHLY
     Route: 048
     Dates: start: 20090922, end: 20090925
  10. DEXAMETHASONE [Suspect]
     Dosage: 108 MG MONTHLY
     Route: 030
     Dates: start: 20100321, end: 20100417
  11. DEXAMETHASONE [Suspect]
     Dosage: 160 MG MONTHLY
     Route: 048
     Dates: start: 20100629, end: 20100726
  12. DEXAMETHASONE [Suspect]
     Dosage: 300 MG MONTHLY
     Route: 030
     Dates: start: 20100827, end: 20100923
  13. DEXAMETHASONE [Suspect]
     Dosage: 32MG MONTHLY
     Route: 030
     Dates: start: 20101113, end: 20101217
  14. DEXAMETHASONE [Suspect]
     Route: 065
     Dates: end: 20110618
  15. HEPARIN [Concomitant]
     Indication: PROPHYLAXIS
     Route: 065

REACTIONS (1)
  - Papillary thyroid cancer [Recovered/Resolved]
